FAERS Safety Report 5156867-5 (Version None)
Quarter: 2006Q4

REPORT INFORMATION
  Report Type: 
  Country: None (occurrence: None)
  Receive Date: 20061115
  Receipt Date: 20061107
  Transmission Date: 20070319
  Serious: Yes (Other)
  Sender: FDA-Public Use
  Company Number: 000#8#2006-00444

PATIENT
  Age: 58 Year
  Sex: Male

DRUGS (1)
  1. GLYCERYL TRINITRATE, SOLUTION (GLYCERYL TRINITRATE) [Suspect]
     Indication: CORONARY REVASCULARISATION
     Dosage: INTRAVENOUS
     Route: 042

REACTIONS (4)
  - ACCIDENTAL OVERDOSE [None]
  - BLOOD PRESSURE DECREASED [None]
  - DEVICE MALFUNCTION [None]
  - LEFT VENTRICULAR END-DIASTOLIC PRESSURE DECREASED [None]
